FAERS Safety Report 8443764-2 (Version None)
Quarter: 2012Q2

REPORT INFORMATION
  Report Type: 
  Country: None (occurrence: None)
  Receive Date: 20120323
  Receipt Date: 20110519
  Transmission Date: 20120825
  Serious: Yes (Hospitalization)
  Sender: FDA-Public Use
  Company Number: 163-21880-11052681

PATIENT
  Age: 83 Year
  Sex: Female

DRUGS (9)
  1. PREMARIN [Concomitant]
  2. ZYRTEC [Concomitant]
  3. SYNTHROID [Concomitant]
  4. VITAMIN E COMPLEX (TOCOPHEROL) [Concomitant]
  5. TRAMADOL-ACETAMINOPHEN (ULTRACET) [Concomitant]
  6. NASONEX [Concomitant]
  7. FLAXCEED OIL (LINSEED OIL) [Concomitant]
  8. TYLENOL PM (TYLENOL PM) [Concomitant]
  9. REVLIMID [Suspect]
     Indication: MULTIPLE MYELOMA
     Dosage: 5 MG, X 21, PO
     Route: 048
     Dates: start: 20110316

REACTIONS (2)
  - RENAL FAILURE [None]
  - CYSTITIS [None]
